FAERS Safety Report 4418056-9 (Version None)
Quarter: 2004Q3

REPORT INFORMATION
  Report Type: 
  Country: None (occurrence: None)
  Receive Date: 20040803
  Receipt Date: 20040720
  Transmission Date: 20050211
  Serious: Yes (Other)
  Sender: FDA-Public Use
  Company Number: S04-GER-03331-01

PATIENT
  Age: 50 Year
  Sex: Male

DRUGS (3)
  1. CIPRALEX (ESCITALOPRAM) [Suspect]
     Dosage: 10 MG QD PO
     Route: 048
     Dates: start: 20040401
  2. VIOXX [Suspect]
  3. PROPECIA [Concomitant]

REACTIONS (1)
  - ALOPECIA [None]
